FAERS Safety Report 8381826-9 (Version None)
Quarter: 2012Q2

REPORT INFORMATION
  Report Type: 
  Country: None (occurrence: None)
  Receive Date: 20120522
  Receipt Date: 20120522
  Transmission Date: 20120825
  Serious: No
  Sender: FDA-Public Use
  Company Number: None

PATIENT
  Sex: Female
  Weight: 81.6475 kg

DRUGS (1)
  1. CELEBREX [Suspect]
     Dosage: QD PO YEARS
     Route: 048

REACTIONS (9)
  - DECREASED APPETITE [None]
  - FATIGUE [None]
  - GASTROINTESTINAL PAIN [None]
  - DRUG WITHDRAWAL SYNDROME [None]
  - DIZZINESS [None]
  - NAUSEA [None]
  - ABDOMINAL PAIN [None]
  - DIARRHOEA [None]
  - HEADACHE [None]
